FAERS Safety Report 24128658 (Version 1)
Quarter: 2024Q3

REPORT INFORMATION
  Report Type: Spontaneous
  Country: US (occurrence: US)
  Receive Date: 20240723
  Receipt Date: 20240723
  Transmission Date: 20241017
  Serious: No
  Sender: NOVO NORDISK
  Company Number: US-NOVOPROD-1210206

PATIENT
  Sex: Male

DRUGS (1)
  1. RYBELSUS [Suspect]
     Active Substance: SEMAGLUTIDE
     Indication: Glucose tolerance impaired
     Dosage: 14 MG
     Route: 048

REACTIONS (6)
  - Hunger [Unknown]
  - Glycosylated haemoglobin decreased [Unknown]
  - Suspected counterfeit product [Unknown]
  - Decreased appetite [Unknown]
  - Off label use [Unknown]
  - Off label use [Unknown]
